FAERS Safety Report 16057830 (Version 1)
Quarter: 2019Q1

REPORT INFORMATION
  Report Type: Spontaneous
  Country: US (occurrence: US)
  Receive Date: 20190311
  Receipt Date: 20190311
  Transmission Date: 20190418
  Serious: Yes (Other)
  Sender: FDA-Public Use
  Company Number: US-TEVA-2019-US-1021392

PATIENT
  Sex: Male

DRUGS (2)
  1. BUDESONIDE INHALATION SUSPENSION [Suspect]
     Active Substance: BUDESONIDE
     Dosage: DOSE STRENGTH:  0.5 MG/2 ML
     Route: 065
     Dates: start: 20190220, end: 20190223
  2. PREDNISONE. [Concomitant]
     Active Substance: PREDNISONE

REACTIONS (5)
  - Expired product administered [Unknown]
  - Haemoptysis [Unknown]
  - Cough [Unknown]
  - Oxygen consumption increased [Unknown]
  - Product dispensing error [Unknown]

NARRATIVE: CASE EVENT DATE: 201902
